FAERS Safety Report 6668183-0 (Version None)
Quarter: 2010Q2

REPORT INFORMATION
  Report Type: 
  Country: None (occurrence: None)
  Receive Date: 20100406
  Receipt Date: 20100330
  Transmission Date: 20101027
  Serious: Yes (Hospitalization, Other)
  Sender: FDA-Public Use
  Company Number: US-ELI_LILLY_AND_COMPANY-US201004000218

PATIENT
  Sex: Female

DRUGS (10)
  1. HUMULIN R [Suspect]
     Indication: DIABETES MELLITUS
     Dosage: UNK, AS NEEDED
     Dates: start: 20080101
  2. HUMULIN R [Suspect]
     Dosage: UNK, AS NEEDED
     Dates: start: 20080101
  3. SPIRIVA [Concomitant]
  4. ADVAIR DISKUS 100/50 [Concomitant]
  5. VENTOLIN [Concomitant]
  6. ZYRTEC [Concomitant]
  7. XANAX [Concomitant]
  8. PREDNISONE TAB [Concomitant]
     Indication: ASTHMA
  9. CORTISONE [Concomitant]
     Indication: BACK PAIN
  10. OXYGEN [Concomitant]
     Indication: SLEEP APNOEA SYNDROME
     Dosage: 2 LITER, EACH EVENING

REACTIONS (10)
  - ASTHENIA [None]
  - BACK PAIN [None]
  - BLOOD GLUCOSE INCREASED [None]
  - INTENTIONAL DRUG MISUSE [None]
  - INTERVERTEBRAL DISC PROTRUSION [None]
  - MUSCULOSKELETAL DISORDER [None]
  - PNEUMONIA [None]
  - PYREXIA [None]
  - SINUSITIS [None]
  - SOMNOLENCE [None]
